FAERS Safety Report 18200056 (Version 3)
Quarter: 2020Q4

REPORT INFORMATION
  Report Type: Spontaneous
  Country: JP (occurrence: JP)
  Receive Date: 20200827
  Receipt Date: 20201009
  Transmission Date: 20210113
  Serious: Yes (Other)
  Sender: FDA-Public Use
  Company Number: JP-AMGEN-JPNCT2020138051

PATIENT

DRUGS (2)
  1. PANITUMUMAB [Suspect]
     Active Substance: PANITUMUMAB
     Indication: COLORECTAL CANCER METASTATIC
     Dosage: 6 MILLIGRAM/KILOGRAM, Q2WK
     Route: 042
  2. IRINOTECAN [Suspect]
     Active Substance: IRINOTECAN
     Indication: COLORECTAL CANCER METASTATIC
     Dosage: 150 MILLIGRAM/SQ. METER, Q2WEEKS
     Route: 042

REACTIONS (11)
  - Acne [Unknown]
  - Skin toxicity [Unknown]
  - Anaphylactic reaction [Unknown]
  - Hypersensitivity [Unknown]
  - Erythema [Unknown]
  - Dermatitis [Unknown]
  - Cytokine release syndrome [Unknown]
  - Rash [Unknown]
  - Dermatitis acneiform [Unknown]
  - Hypomagnesaemia [Unknown]
  - Infusion related reaction [Unknown]
